FAERS Safety Report 16148086 (Version 3)
Quarter: 2019Q2

REPORT INFORMATION
  Report Type: Spontaneous
  Country: FR (occurrence: FR)
  Receive Date: 20190402
  Receipt Date: 20190610
  Transmission Date: 20190711
  Serious: Yes (Other)
  Sender: FDA-Public Use
  Company Number: FR-BAYER-2019-057446

PATIENT
  Age: 47 Year
  Sex: Male

DRUGS (7)
  1. BETACOMFORT [Suspect]
     Active Substance: DEVICE
     Dosage: UNK
  2. BACLOFENE [Concomitant]
     Active Substance: BACLOFEN
  3. ATORVASTATIN [Concomitant]
     Active Substance: ATORVASTATIN
     Dosage: UNK
  4. ESOMEPRAZOLE. [Concomitant]
     Active Substance: ESOMEPRAZOLE MAGNESIUM
  5. BETAFERON [Suspect]
     Active Substance: INTERFERON BETA-1B
     Dosage: 1 DF, QOD
     Dates: start: 2009
  6. VERAPAMIL [Concomitant]
     Active Substance: VERAPAMIL HYDROCHLORIDE
  7. DAFALGAN [Concomitant]
     Active Substance: ACETAMINOPHEN

REACTIONS (7)
  - Device operational issue [Unknown]
  - Myocardial infarction [Unknown]
  - Peripheral swelling [Unknown]
  - Injection site erythema [None]
  - Device difficult to use [Unknown]
  - Injection site reaction [Unknown]
  - Injection site haematoma [Unknown]

NARRATIVE: CASE EVENT DATE: 2015
